FAERS Safety Report 5258225-1 (Version None)
Quarter: 2007Q1

REPORT INFORMATION
  Report Type: 
  Country: None (occurrence: None)
  Receive Date: 20061117
  Receipt Date: 20060801
  Transmission Date: 20070707
  Serious: Yes (Hospitalization)
  Sender: FDA-Public Use
  Company Number: US-JNJFOC-20060306889

PATIENT
  Age: 65 Year
  Sex: Female
  Weight: 61.2356 kg

DRUGS (10)
  1. LEVAQUIN [Suspect]
     Indication: SINUSITIS
     Dosage: 500 MG, 1 IN 1 DAY, ORAL
     Route: 048
     Dates: start: 20060216, end: 20060217
  2. BENICAR [Suspect]
     Indication: HYPERTENSION
     Dosage: 40 MG, 1 IN  1 DAY
  3. MUCINEX [Concomitant]
  4. LOPRESSOR [Concomitant]
  5. EVISTA [Concomitant]
  6. ZOCOR [Concomitant]
  7. TRIAVIL (ETRAFON-D) [Concomitant]
  8. CENTRUM SILVER (CENTRUM SILVER) [Concomitant]
  9. CALCIUM (CALCIUM) [Concomitant]
  10. FLAXSEED CAPSULE (LINSEED OIL) [Concomitant]

REACTIONS (10)
  - ABDOMINAL PAIN UPPER [None]
  - ARTHRALGIA [None]
  - BLOOD SODIUM DECREASED [None]
  - CONVULSION [None]
  - DIARRHOEA [None]
  - FACE OEDEMA [None]
  - FEELING ABNORMAL [None]
  - HYPOMAGNESAEMIA [None]
  - PHARYNGEAL OEDEMA [None]
  - VISUAL DISTURBANCE [None]
